FAERS Safety Report 25538043 (Version 3)
Quarter: 2025Q4

REPORT INFORMATION
  Report Type: Spontaneous
  Country: JP (occurrence: JP)
  Receive Date: 20250710
  Receipt Date: 20251223
  Transmission Date: 20260118
  Serious: No
  Sender: ASTELLAS
  Company Number: JP-ASTELLAS-2025-AER-037330

PATIENT
  Age: 8 Decade
  Sex: Male

DRUGS (2)
  1. PADCEV [Suspect]
     Active Substance: ENFORTUMAB VEDOTIN-EJFV
     Indication: Transitional cell carcinoma
     Dosage: ONCE PER WEEK, ADMINISTERED 2 WEEKS AND 1 WEEK REST
     Route: 042
     Dates: start: 20250701
  2. PEMBROLIZUMAB [Concomitant]
     Active Substance: PEMBROLIZUMAB
     Indication: Product used for unknown indication
     Route: 065

REACTIONS (2)
  - Imaging procedure abnormal [Recovered/Resolved]
  - Diarrhoea [Recovered/Resolved]

NARRATIVE: CASE EVENT DATE: 20250704
